FAERS Safety Report 10453169 (Version 1)
Quarter: 2014Q3

REPORT INFORMATION
  Report Type: Spontaneous
  Country: SK (occurrence: SK)
  Receive Date: 20140915
  Receipt Date: 20140915
  Transmission Date: 20150326
  Serious: Yes (Death)
  Sender: FDA-Public Use
  Company Number: SK-GLAXOSMITHKLINE-B1032796A

PATIENT
  Age: 24 Year
  Sex: Female

DRUGS (1)
  1. RYTHMOL [Suspect]
     Active Substance: PROPAFENONE HYDROCHLORIDE
     Indication: PRODUCT USED FOR UNKNOWN INDICATION
     Route: 065

REACTIONS (3)
  - Poisoning [Fatal]
  - Completed suicide [Fatal]
  - Cardiac arrest [Fatal]

NARRATIVE: CASE EVENT DATE: 200612
